FAERS Safety Report 7260850-3 (Version None)
Quarter: 2011Q1

REPORT INFORMATION
  Report Type: 
  Country: None (occurrence: None)
  Receive Date: 20110130
  Receipt Date: 20101122
  Transmission Date: 20110831
  Serious: No
  Sender: FDA-Public Use
  Company Number: US-ABBOTT-10P-163-0687252-00

PATIENT
  Sex: Female
  Weight: 57.658 kg

DRUGS (4)
  1. HUMIRA [Suspect]
     Dates: start: 20091101
  2. MULTI-VITAMIN [Concomitant]
     Indication: VITAMIN SUPPLEMENTATION
  3. SOLODYN [Concomitant]
     Indication: ACNE
  4. HUMIRA [Suspect]
     Indication: CROHN'S DISEASE
     Dates: start: 20090101, end: 20091101

REACTIONS (1)
  - CROHN'S DISEASE [None]
